FAERS Safety Report 14705831 (Version 3)
Quarter: 2018Q2

REPORT INFORMATION
  Report Type: Spontaneous
  Country: ES (occurrence: ES)
  Receive Date: 20180402
  Receipt Date: 20180510
  Transmission Date: 20180711
  Serious: Yes (Other)
  Sender: FDA-Public Use
  Company Number: ES-009507513-1803ESP011472

PATIENT
  Age: 53 Year
  Sex: Male

DRUGS (10)
  1. SOMATULINE AUTOGEL [Suspect]
     Active Substance: LANREOTIDE ACETATE
     Indication: PARAGANGLION NEOPLASM MALIGNANT
     Dosage: SYSTEMIC TREATMENT  EVERY 14 DAYS
     Route: 065
     Dates: start: 201411, end: 2016
  2. TEMOZOLOMIDE. [Suspect]
     Active Substance: TEMOZOLOMIDE
     Indication: PANCREATIC NEUROENDOCRINE TUMOUR METASTATIC
     Dosage: CYCLICAL
     Route: 065
     Dates: start: 201605, end: 201707
  3. SOMATULINE AUTOGEL [Suspect]
     Active Substance: LANREOTIDE ACETATE
     Indication: PANCREATIC NEUROENDOCRINE TUMOUR METASTATIC
     Dosage: 120 MG, Q3W
     Route: 065
     Dates: start: 2016, end: 201701
  4. PROPRANOLOL [Concomitant]
     Active Substance: PROPRANOLOL HYDROCHLORIDE
     Indication: HYPERTENSION
     Dosage: 120 MG, QD
     Route: 065
     Dates: start: 201506, end: 201605
  5. PROPRANOLOL [Concomitant]
     Active Substance: PROPRANOLOL HYDROCHLORIDE
     Dosage: 240 MG, QD
     Route: 065
     Dates: start: 201605
  6. TEMOZOLOMIDE. [Suspect]
     Active Substance: TEMOZOLOMIDE
     Indication: PARAGANGLION NEOPLASM MALIGNANT
  7. DOXAZOSIN [Concomitant]
     Active Substance: DOXAZOSIN\DOXAZOSIN MESYLATE
     Indication: HYPERTENSION
     Dosage: 8 MG, QD
     Route: 065
     Dates: start: 2014
  8. DENOSUMAB [Concomitant]
     Active Substance: DENOSUMAB
     Indication: PARAGANGLION NEOPLASM MALIGNANT
  9. HYDROCHLOROTHIAZIDE (+) IRBESARTAN [Concomitant]
     Active Substance: HYDROCHLOROTHIAZIDE\IRBESARTAN
     Indication: HYPERTENSION
     Dosage: IRBESARTAN/HYDROCHLOROTHIAZIDE (1250MG/12.5MG, RESPECTIVELY)
     Route: 065
  10. DENOSUMAB [Concomitant]
     Active Substance: DENOSUMAB
     Indication: PANCREATIC NEUROENDOCRINE TUMOUR METASTATIC
     Dosage: 120 MG EVERY 28 DAYS
     Route: 065
     Dates: start: 201411

REACTIONS (7)
  - Thrombocytopenia [Unknown]
  - Nausea [Unknown]
  - Hyperglycaemia [Unknown]
  - Inappropriate schedule of drug administration [Unknown]
  - Lymphopenia [Unknown]
  - Vomiting [Unknown]
  - Diarrhoea [Unknown]

NARRATIVE: CASE EVENT DATE: 2016
